FAERS Safety Report 9932787 (Version 3)
Quarter: 2015Q2

REPORT INFORMATION
  Report Type: Spontaneous
  Country: US (occurrence: US)
  Receive Date: 20140228
  Receipt Date: 20150616
  Transmission Date: 20150821
  Serious: Yes (Other)
  Sender: FDA-Public Use
  Company Number: US-GLAXOSMITHKLINE-A1028197A

PATIENT
  Age: 18 Year
  Sex: Male

DRUGS (7)
  1. LAMOTRIGINE. [Suspect]
     Active Substance: LAMOTRIGINE
     Indication: NERVOUS SYSTEM DISORDER
     Dosage: UNK UNK, U
  2. LAMICTAL [Suspect]
     Active Substance: LAMOTRIGINE
     Dosage: 25 MG, U
     Dates: start: 20140128
  3. LAMICTAL [Suspect]
     Active Substance: LAMOTRIGINE
     Indication: EPILEPSY
     Dosage: 100 MG, U
     Route: 048
     Dates: start: 20111216
  4. LAMICTAL [Suspect]
     Active Substance: LAMOTRIGINE
     Dosage: 300 MG, U
  5. LAMICTAL [Suspect]
     Active Substance: LAMOTRIGINE
     Indication: SEIZURE
     Dosage: 200 MG, U
     Route: 048
     Dates: start: 20130715
  6. LAMICTAL XR [Suspect]
     Active Substance: LAMOTRIGINE
     Indication: PRODUCT USED FOR UNKNOWN INDICATION
     Dosage: 300 MG, U
     Dates: start: 20130711
  7. LAMICTAL XR [Suspect]
     Active Substance: LAMOTRIGINE
     Dosage: 200 MG, U

REACTIONS (7)
  - Loss of consciousness [Unknown]
  - Seizure [Unknown]
  - Periorbital contusion [Unknown]
  - Haematoma [Unknown]
  - Generalised tonic-clonic seizure [Unknown]
  - Road traffic accident [Unknown]
  - Drug ineffective [Unknown]

NARRATIVE: CASE EVENT DATE: 20140416
